FAERS Safety Report 9352385 (Version 1)
Quarter: 2013Q2

REPORT INFORMATION
  Report Type: Spontaneous
  Country: CA (occurrence: CA)
  Receive Date: 20130617
  Receipt Date: 20130617
  Transmission Date: 20140414
  Serious: Yes (Death, Hospitalization)
  Sender: FDA-Public Use
  Company Number: CA-ELI_LILLY_AND_COMPANY-CA201306004173

PATIENT
  Sex: Female

DRUGS (15)
  1. ADCIRCA [Suspect]
     Indication: PULMONARY ARTERIAL HYPERTENSION
     Dosage: 40 MG, QD
     Dates: start: 20130222
  2. FLOLAN [Concomitant]
     Indication: PULMONARY HYPERTENSION
     Dosage: 1.9 ML, OTHER
  3. FUROSEMIDE [Concomitant]
     Dosage: 80 MG, BID
  4. OXAZEPAM [Concomitant]
     Dosage: 15 MG, QD
  5. PANTOLOC                           /01263204/ [Concomitant]
     Dosage: 40 MG, QD
  6. PAXIL [Concomitant]
     Dosage: 10 MG, QD
  7. ALDACTONE [Concomitant]
     Dosage: 10 MG, BID
  8. ASA [Concomitant]
     Dosage: 81 MG, QD
  9. CALCIUM WITH VITAMIN D [Concomitant]
     Dosage: 500 MG, QD
  10. DOMPERIDONE [Concomitant]
     Dosage: UNK
     Route: 062
  11. FLONASE [Concomitant]
  12. GRAVOL [Concomitant]
  13. PAROXETINE [Concomitant]
     Dosage: 40 MG, UNK
  14. OXYGEN [Concomitant]
     Dosage: 2 L, UNK
  15. LORAZEPAM [Concomitant]

REACTIONS (2)
  - Cardiac failure [Fatal]
  - Pneumonia [Unknown]
